FAERS Safety Report 14252653 (Version 1)
Quarter: 2017Q4

REPORT INFORMATION
  Report Type: Other
  Country: US (occurrence: US)
  Receive Date: 20171205
  Receipt Date: 20171205
  Transmission Date: 20180321
  Serious: Yes (Hospitalization)
  Sender: FDA-Public Use
  Company Number: US-ATLAS PHARMACEUTICALS, LLC-2036757

PATIENT
  Age: 53 Year
  Sex: Male

DRUGS (3)
  1. INSULIN ASPART [Concomitant]
     Active Substance: INSULIN ASPART
     Route: 065
  2. INSULIN GLARGINE [Concomitant]
     Active Substance: INSULIN GLARGINE
     Route: 065
  3. METFORMIN [Suspect]
     Active Substance: METFORMIN HYDROCHLORIDE
     Indication: DIABETES MELLITUS
     Route: 065

REACTIONS (2)
  - Chromaturia [Unknown]
  - Haemolytic anaemia [Recovered/Resolved]
